FAERS Safety Report 7656292-9 (Version None)
Quarter: 2011Q3

REPORT INFORMATION
  Report Type: 
  Country: None (occurrence: None)
  Receive Date: 20110729
  Receipt Date: 20110719
  Transmission Date: 20111222
  Serious: Yes (Hospitalization)
  Sender: FDA-Public Use
  Company Number: JPI-P-015964

PATIENT
  Age: 39 Year
  Sex: Female
  Weight: 75.2971 kg

DRUGS (5)
  1. XYREM [Suspect]
     Indication: FIBROMYALGIA
     Dosage: ORAL
     Route: 048
     Dates: start: 20110601, end: 20110701
  2. XYREM [Suspect]
     Indication: NARCOLEPSY
     Dosage: ORAL
     Route: 048
     Dates: start: 20110601, end: 20110701
  3. XYREM [Suspect]
     Indication: SOMNOLENCE
     Dosage: ORAL
     Route: 048
     Dates: start: 20110601, end: 20110701
  4. LISDEXAMFETAMINE DIMESYLATE [Concomitant]
  5. OPIUM [Suspect]
     Indication: PAIN
     Dates: end: 20110701

REACTIONS (3)
  - AMNESIA [None]
  - ANAPHYLACTOID REACTION [None]
  - RESPIRATORY ARREST [None]
